FAERS Safety Report 7323688-4 (Version None)
Quarter: 2011Q1

REPORT INFORMATION
  Report Type: 
  Country: None (occurrence: None)
  Receive Date: 20110301
  Receipt Date: 20100830
  Transmission Date: 20110831
  Serious: Yes (Hospitalization, Other)
  Sender: FDA-Public Use
  Company Number: US-BAYER-200941344NA

PATIENT
  Sex: Female
  Weight: 100 kg

DRUGS (17)
  1. IBUPROFEN [Concomitant]
     Indication: PRODUCT USED FOR UNKNOWN INDICATION
  2. ORTHO TRI-CYCLEN [Concomitant]
  3. ALBUTEROL [Concomitant]
     Indication: PRODUCT USED FOR UNKNOWN INDICATION
     Dates: start: 20000101
  4. XANAX [Concomitant]
  5. ADIPEX [Concomitant]
  6. ADVAIR DISKUS 100/50 [Concomitant]
  7. YASMIN [Suspect]
     Indication: CONTRACEPTION
  8. CLARITIN [Concomitant]
     Indication: PRODUCT USED FOR UNKNOWN INDICATION
     Dates: start: 20000101
  9. PRILOSEC [Concomitant]
  10. ALBUTEROL [Concomitant]
  11. YASMIN [Suspect]
     Indication: MENSTRUAL CYCLE MANAGEMENT
     Dates: start: 20040101, end: 20090101
  12. YAZ [Suspect]
     Indication: MENSTRUAL CYCLE MANAGEMENT
  13. ALLEGRA [Concomitant]
     Indication: PRODUCT USED FOR UNKNOWN INDICATION
     Dates: start: 20000101
  14. YAZ [Suspect]
     Indication: CONTRACEPTION
     Dates: start: 20040101, end: 20090101
  15. POTASSIUM [Concomitant]
     Indication: PRODUCT USED FOR UNKNOWN INDICATION
  16. UNKNOWN DRUG [Concomitant]
     Indication: ASTHMA
  17. UNKNOWN DRUG [Concomitant]
     Indication: MEDICAL DIET

REACTIONS (10)
  - GALLBLADDER CHOLESTEROLOSIS [None]
  - CHOLECYSTITIS CHRONIC [None]
  - ABORTION SPONTANEOUS [None]
  - PREGNANCY ON ORAL CONTRACEPTIVE [None]
  - NAUSEA [None]
  - DEPRESSION [None]
  - ABDOMINAL PAIN UPPER [None]
  - VOMITING [None]
  - PAIN [None]
  - DIARRHOEA [None]
